FAERS Safety Report 9343907 (Version 2)
Quarter: 2013Q3

REPORT INFORMATION
  Report Type: Spontaneous
  Country: US (occurrence: US)
  Receive Date: 20130612
  Receipt Date: 20130920
  Transmission Date: 20140515
  Serious: Yes (Other)
  Sender: FDA-Public Use
  Company Number: US-ROCHE-1099671

PATIENT
  Age: 26 Year
  Sex: Female
  Weight: 59.02 kg

DRUGS (4)
  1. ACCUTANE [Suspect]
     Indication: ACNE
     Route: 065
     Dates: start: 198809, end: 199901
  2. ACCUTANE [Suspect]
     Route: 065
     Dates: start: 19880926
  3. ACCUTANE [Suspect]
     Route: 065
     Dates: start: 19881206
  4. ACCUTANE [Suspect]
     Route: 065
     Dates: start: 18981227

REACTIONS (6)
  - Colitis ulcerative [Unknown]
  - Intestinal obstruction [Unknown]
  - Inflammatory bowel disease [Unknown]
  - Irritable bowel syndrome [Unknown]
  - Pelvic abscess [Unknown]
  - Depression [Unknown]
